FAERS Safety Report 17003323 (Version 1)
Quarter: 2019Q4

REPORT INFORMATION
  Report Type: Spontaneous
  Country: US (occurrence: US)
  Receive Date: 20191107
  Receipt Date: 20191107
  Transmission Date: 20200122
  Serious: No
  Sender: FDA-Public Use
  Company Number: US-ALLERGAN-1929933US

PATIENT
  Age: 60 Year
  Sex: Female

DRUGS (2)
  1. ALPHAGAN P [Suspect]
     Active Substance: BRIMONIDINE TARTRATE
     Dosage: 1 GTT, BID
     Route: 047
     Dates: start: 201808, end: 20190619
  2. ALPHAGAN P [Suspect]
     Active Substance: BRIMONIDINE TARTRATE
     Indication: OPEN ANGLE GLAUCOMA
     Dosage: 1 GTT, (ONCE DAILY INSTEAD OF BID)
     Route: 047
     Dates: start: 20190704, end: 20190714

REACTIONS (2)
  - Inappropriate schedule of product administration [Unknown]
  - Eye irritation [Not Recovered/Not Resolved]

NARRATIVE: CASE EVENT DATE: 2019
